FAERS Safety Report 25964628 (Version 1)
Quarter: 2025Q4

REPORT INFORMATION
  Report Type: Report from Study
  Country: US (occurrence: US)
  Receive Date: 20251027
  Receipt Date: 20251027
  Transmission Date: 20260118
  Serious: Yes (Hospitalization, Other)
  Sender: ABBVIE
  Company Number: US-ABBVIE-6392391

PATIENT
  Age: 64 Year
  Sex: Female

DRUGS (3)
  1. RINVOQ [Suspect]
     Active Substance: UPADACITINIB
     Indication: Dermatitis atopic
     Dosage: STRENGTH: 15MG, LAST ADMIN DATE: 2025
     Route: 048
     Dates: start: 20250429
  2. RINVOQ [Suspect]
     Active Substance: UPADACITINIB
     Indication: Dermatitis atopic
     Dosage: STRENGTH: 15MG, FIRST ADMIN DATE: 2025
     Route: 048
  3. STELARA [Concomitant]
     Active Substance: USTEKINUMAB
     Indication: Product used for unknown indication
     Dosage: PFS

REACTIONS (4)
  - Appendicectomy [Unknown]
  - Skin fissures [Not Recovered/Not Resolved]
  - Dry skin [Not Recovered/Not Resolved]
  - Skin exfoliation [Not Recovered/Not Resolved]

NARRATIVE: CASE EVENT DATE: 20250101
